FAERS Safety Report 4963974-6 (Version None)
Quarter: 2006Q2

REPORT INFORMATION
  Report Type: 
  Country: None (occurrence: None)
  Receive Date: 20060405
  Receipt Date: 20051019
  Transmission Date: 20061013
  Serious: Yes (Hospitalization)
  Sender: FDA-Public Use
  Company Number: US-MERCK-0510USA08250

PATIENT
  Age: 73 Year
  Sex: Female
  Weight: 82 kg

DRUGS (1)
  1. VIOXX [Suspect]
     Indication: ARTHRITIS
     Route: 048
     Dates: start: 19990701, end: 20010701

REACTIONS (20)
  - ANGINA UNSTABLE [None]
  - ARTERIOSCLEROSIS [None]
  - BACK PAIN [None]
  - BLOOD CHOLESTEROL INCREASED [None]
  - CARDIAC DISORDER [None]
  - CARDIOVASCULAR DISORDER [None]
  - CATARACT [None]
  - CHEST PAIN [None]
  - DEEP VEIN THROMBOSIS [None]
  - DIZZINESS [None]
  - FACIAL BONES FRACTURE [None]
  - GASTROOESOPHAGEAL REFLUX DISEASE [None]
  - GLAUCOMA [None]
  - HEART RATE INCREASED [None]
  - HYPERTENSION [None]
  - JOINT SWELLING [None]
  - OEDEMA PERIPHERAL [None]
  - PALPITATIONS [None]
  - SYNCOPE [None]
  - THROMBOSIS [None]
